FAERS Safety Report 7472845-5 (Version None)
Quarter: 2011Q1

REPORT INFORMATION
  Report Type: 
  Country: None (occurrence: None)
  Receive Date: 20110302
  Receipt Date: 20100728
  Transmission Date: 20110831
  Serious: Yes (Death)
  Sender: FDA-Public Use
  Company Number: 163-21880-10050628

PATIENT
  Age: 77 Year
  Sex: Female

DRUGS (17)
  1. LISINOPRIL [Concomitant]
  2. ADVAIR HFA [Concomitant]
  3. LIDODERM [Concomitant]
  4. LASIX [Concomitant]
  5. FLUCONAZOLE [Concomitant]
  6. DEXAMETHASONE [Concomitant]
  7. ZOMETA [Concomitant]
  8. REVLIMID [Suspect]
     Indication: MULTIPLE MYELOMA
     Dosage: 10 MG, DAILY FOR 21 DAYS OFF 7 DAYS, PO; 10 MG, 1 IN 1 D, PO, 10 MG, 1 IN 1 D, PO; 10 MG, 1 IN 1 D,
     Route: 048
     Dates: start: 20080301
  9. REVLIMID [Suspect]
     Indication: MULTIPLE MYELOMA
     Dosage: 10 MG, DAILY FOR 21 DAYS OFF 7 DAYS, PO; 10 MG, 1 IN 1 D, PO, 10 MG, 1 IN 1 D, PO; 10 MG, 1 IN 1 D,
     Route: 048
     Dates: start: 20080901
  10. REVLIMID [Suspect]
     Indication: MULTIPLE MYELOMA
     Dosage: 10 MG, DAILY FOR 21 DAYS OFF 7 DAYS, PO; 10 MG, 1 IN 1 D, PO, 10 MG, 1 IN 1 D, PO; 10 MG, 1 IN 1 D,
     Route: 048
     Dates: start: 20091001, end: 20100101
  11. REVLIMID [Suspect]
     Indication: MULTIPLE MYELOMA
     Dosage: 10 MG, DAILY FOR 21 DAYS OFF 7 DAYS, PO; 10 MG, 1 IN 1 D, PO, 10 MG, 1 IN 1 D, PO; 10 MG, 1 IN 1 D,
     Route: 048
     Dates: start: 20090501
  12. ALDACTONE [Concomitant]
  13. PRAVASTATIN [Concomitant]
  14. POTASSIUM (POTASSIUM) [Concomitant]
  15. SPIRIVA [Concomitant]
  16. COMBIVENT [Concomitant]
  17. CARVEDILOL [Concomitant]

REACTIONS (3)
  - CARDIAC FAILURE CONGESTIVE [None]
  - RESPIRATORY FAILURE [None]
  - RENAL FAILURE [None]
